FAERS Safety Report 6904973-4 (Version None)
Quarter: 2010Q3

REPORT INFORMATION
  Report Type: 
  Country: None (occurrence: None)
  Receive Date: 20100804
  Receipt Date: 20090812
  Transmission Date: 20110219
  Serious: No
  Sender: FDA-Public Use
  Company Number: US-PFIZER INC-2009230779

PATIENT
  Sex: Female

DRUGS (4)
  1. LYRICA [Suspect]
     Indication: RADICULOPATHY
     Dosage: 75 MG EVERY NIGHT
     Route: 048
     Dates: start: 20090618, end: 20090624
  2. MOTRIN [Concomitant]
     Dosage: 800 MG, 3X/DAY
  3. RITALIN [Concomitant]
  4. PROZAC [Concomitant]

REACTIONS (1)
  - NEURALGIA [None]
